FAERS Safety Report 4736372-8 (Version None)
Quarter: 2005Q3

REPORT INFORMATION
  Report Type: 
  Country: None (occurrence: None)
  Receive Date: 20050804
  Receipt Date: 20050721
  Transmission Date: 20060218
  Serious: Yes (Hospitalization)
  Sender: FDA-Public Use
  Company Number: 200507IM000329

PATIENT
  Age: 52 Year
  Sex: Female
  Weight: 107.5025 kg

DRUGS (3)
  1. INFERGEN [Suspect]
     Indication: CHRONIC HEPATITIS
     Dosage: 15 UG;QD; SUBCUTANEOUS
     Route: 058
     Dates: start: 20040721, end: 20050627
  2. INFERGEN [Suspect]
     Indication: HEPATITIS C
     Dosage: 15 UG;QD; SUBCUTANEOUS
     Route: 058
     Dates: start: 20040721, end: 20050627
  3. DOXEPIN HCL [Concomitant]

REACTIONS (3)
  - BACTERIAL INFECTION [None]
  - BLOOD PRESSURE INCREASED [None]
  - HEPATIC INFECTION [None]
